FAERS Safety Report 12311643 (Version 2)
Quarter: 2016Q2

REPORT INFORMATION
  Report Type: Other
  Country: SE (occurrence: SE)
  Receive Date: 20160427
  Receipt Date: 20160614
  Transmission Date: 20160815
  Serious: Yes (Other)
  Sender: FDA-Public Use
  Company Number: SE-VALIDUS PHARMACEUTICALS LLC-SE-2016VAL001263

PATIENT
  Age: 76 Year
  Sex: Female

DRUGS (1)
  1. CEFOTAXIME SODIUM [Suspect]
     Active Substance: CEFOTAXIME SODIUM
     Indication: PRODUCT USED FOR UNKNOWN INDICATION
     Dosage: UNK

REACTIONS (5)
  - Hypersensitivity [Unknown]
  - Dry skin [Unknown]
  - Eye swelling [Unknown]
  - Skin wound [Unknown]
  - Blister [Unknown]

NARRATIVE: CASE EVENT DATE: 20140223
